FAERS Safety Report 4931141-8 (Version None)
Quarter: 2006Q1

REPORT INFORMATION
  Report Type: 
  Country: None (occurrence: None)
  Receive Date: 20060302
  Receipt Date: 20050829
  Transmission Date: 20060701
  Serious: Yes (Hospitalization, Other)
  Sender: FDA-Public Use
  Company Number: US-MERCK-0508USA05099

PATIENT
  Age: 59 Year
  Sex: Male
  Weight: 102 kg

DRUGS (15)
  1. VIOXX [Suspect]
     Indication: PAIN
     Route: 048
     Dates: start: 20030401, end: 20041001
  2. POTASSIUM (UNSPECIFIED) [Concomitant]
     Route: 065
  3. GLUCOPHAGE [Concomitant]
     Route: 065
  4. DIGITEK [Concomitant]
     Route: 065
  5. CAPTOPRIL [Concomitant]
     Route: 065
  6. CARAFATE [Concomitant]
     Route: 065
  7. PREVACID [Concomitant]
     Route: 065
  8. COUMADIN [Concomitant]
     Route: 065
  9. COUMADIN [Concomitant]
     Route: 065
  10. FUROSEMIDE [Concomitant]
     Route: 065
  11. PAXIL [Concomitant]
     Route: 065
  12. BUMEX [Concomitant]
     Route: 065
  13. HUMULIN 70/30 [Concomitant]
     Route: 058
  14. HUMULIN 70/30 [Concomitant]
     Route: 058
  15. VICODIN [Concomitant]
     Route: 065

REACTIONS (36)
  - ANXIETY [None]
  - AORTIC VALVE REPLACEMENT [None]
  - ASTHENIA [None]
  - BLOOD CREATININE INCREASED [None]
  - BLOOD POTASSIUM INCREASED [None]
  - BLOOD TRIGLYCERIDES INCREASED [None]
  - BRADYCARDIA [None]
  - CARDIAC FAILURE CONGESTIVE [None]
  - CARDIAC VALVE DISEASE [None]
  - CARDIOMEGALY [None]
  - CARDIOMYOPATHY [None]
  - CONDUCTION DISORDER [None]
  - COUGH [None]
  - DEPRESSION [None]
  - DIABETES MELLITUS [None]
  - DIASTOLIC DYSFUNCTION [None]
  - DIZZINESS [None]
  - EFFUSION [None]
  - EPISTAXIS [None]
  - EXOSTOSIS [None]
  - FATIGUE [None]
  - GASTROOESOPHAGEAL REFLUX DISEASE [None]
  - HYPERLIPIDAEMIA [None]
  - HYPERTENSION [None]
  - INTERVERTEBRAL DISC DEGENERATION [None]
  - MITRAL VALVE CALCIFICATION [None]
  - MITRAL VALVE INCOMPETENCE [None]
  - NASAL CONGESTION [None]
  - PAIN IN EXTREMITY [None]
  - PULMONARY OEDEMA [None]
  - RESPIRATORY DISTRESS [None]
  - ROTATOR CUFF SYNDROME [None]
  - SYNCOPE [None]
  - TRANSIENT ISCHAEMIC ATTACK [None]
  - VENTRICULAR TACHYCARDIA [None]
  - VERTIGO [None]
